FAERS Safety Report 7711946-0 (Version None)
Quarter: 2011Q3

REPORT INFORMATION
  Report Type: 
  Country: None (occurrence: None)
  Receive Date: 20110826
  Receipt Date: 20110825
  Transmission Date: 20111222
  Serious: Yes (Hospitalization)
  Sender: FDA-Public Use
  Company Number: CZ-BRISTOL-MYERS SQUIBB COMPANY-15897218

PATIENT
  Age: 68 Year
  Sex: Male

DRUGS (6)
  1. NOVORAPID [Suspect]
     Indication: TYPE 2 DIABETES MELLITUS
     Dates: start: 20110705
  2. BLINDED: SAXAGLIPTIN [Suspect]
     Indication: TYPE 2 DIABETES MELLITUS
     Dosage: INTERR ON 08JUL2011,RESTARTED ON 08JUL2011
     Dates: start: 20100818
  3. BLINDED: PLACEBO [Suspect]
     Indication: TYPE 2 DIABETES MELLITUS
     Dosage: INTERRUPTED ON 08JUL2011
     Dates: start: 20100818
  4. GLUCOPHAGE [Suspect]
     Indication: TYPE 2 DIABETES MELLITUS
     Dates: end: 20110705
  5. TARKA [Suspect]
  6. LANTUS [Suspect]
     Indication: TYPE 2 DIABETES MELLITUS
     Dates: end: 20110705

REACTIONS (3)
  - LACTIC ACIDOSIS [None]
  - GASTROENTERITIS [None]
  - RENAL FAILURE [None]
